FAERS Safety Report 6537949-X (Version None)
Quarter: 2010Q1

REPORT INFORMATION
  Report Type: 
  Country: None (occurrence: None)
  Receive Date: 20100114
  Receipt Date: 20100112
  Transmission Date: 20100710
  Serious: Yes (Other)
  Sender: FDA-Public Use
  Company Number: GB-WYE-G05328610

PATIENT
  Sex: Male

DRUGS (1)
  1. ANADIN ULTRA [Suspect]
     Indication: HEADACHE
     Dosage: AS DESCRIBED ON PACKAGING

REACTIONS (1)
  - RECTAL HAEMORRHAGE [None]
